FAERS Safety Report 19298593 (Version 1)
Quarter: 2021Q2

REPORT INFORMATION
  Report Type: Spontaneous
  Country: US (occurrence: US)
  Receive Date: 20210525
  Receipt Date: 20210525
  Transmission Date: 20210717
  Serious: Yes (Disabling)
  Sender: FDA-Public Use
  Company Number: US-AUROBINDO-AUR-APL-2019-096321

PATIENT
  Age: 60 Year
  Sex: Male
  Weight: 212.7 kg

DRUGS (8)
  1. HYDROCHLOROTHIAZIDE. [Concomitant]
     Active Substance: HYDROCHLOROTHIAZIDE
     Indication: PRODUCT USED FOR UNKNOWN INDICATION
     Dosage: 25 MG, DAILY
     Route: 065
  2. METHYLPREDNISOLONE. [Suspect]
     Active Substance: METHYLPREDNISOLONE
     Indication: LYME DISEASE
     Dosage: 20 MG/DAY TAPERED DOWN BY 5 MG PER DAY OVER 6; SHORT COURSE
     Route: 048
  3. METOPROLOL. [Concomitant]
     Active Substance: METOPROLOL
     Indication: PRODUCT USED FOR UNKNOWN INDICATION
     Dosage: 100MG DAILY
     Route: 065
  4. DOXYCYCLINE. [Concomitant]
     Active Substance: DOXYCYCLINE
     Indication: LYME DISEASE
     Dosage: 6 WEEKS COURSE
     Route: 065
  5. VITAMIN D [Concomitant]
     Active Substance: VITAMIN D NOS
     Indication: PRODUCT USED FOR UNKNOWN INDICATION
     Dosage: 400 IU DAILY
     Route: 065
  6. PANTOPRAZOLE [Suspect]
     Active Substance: PANTOPRAZOLE
     Indication: PRODUCT USED FOR UNKNOWN INDICATION
     Dosage: 40 MG, DAILY
     Route: 065
  7. DENOSUMAB [Suspect]
     Active Substance: DENOSUMAB
     Indication: BONE GIANT CELL TUMOUR
     Dosage: 120MG MONTHLY FOR THE PAST 4 YEARS
     Route: 065
  8. CALCIUM [Concomitant]
     Active Substance: CALCIUM
     Indication: PRODUCT USED FOR UNKNOWN INDICATION
     Dosage: 600MG DAILY
     Route: 065

REACTIONS (2)
  - Medial tibial stress syndrome [Recovering/Resolving]
  - Periostitis [Recovering/Resolving]
